FAERS Safety Report 20347235 (Version 1)
Quarter: 2022Q1

REPORT INFORMATION
  Report Type: Spontaneous
  Country: US (occurrence: None)
  Receive Date: 20220118
  Receipt Date: 20220118
  Transmission Date: 20220423
  Serious: Yes (Hospitalization)
  Sender: FDA-Public Use
  Company Number: None

PATIENT
  Sex: Female

DRUGS (7)
  1. METHOTREXATE [Suspect]
     Active Substance: METHOTREXATE
     Indication: Rheumatoid arthritis
     Dosage: OTHER QUANTITY : 50MG/2ML;  INJECT 0.3 ML UNDER THE SKIN (SUBCUTANEOUS INJECTION) ONCE A WEEK- DISCA
     Dates: start: 20191206
  2. ACTEMRA [Concomitant]
     Active Substance: TOCILIZUMAB
  3. ASPIRIN [Concomitant]
     Active Substance: ASPIRIN
  4. FOLIC ACID TAB [Concomitant]
  5. LISINOPRIL [Concomitant]
     Active Substance: LISINOPRIL
  6. METOPROL SUC TAB [Concomitant]
  7. MULTIVITAMIN TAB [Concomitant]

REACTIONS (1)
  - Hospitalisation [None]
